FAERS Safety Report 4593234-7 (Version None)
Quarter: 2005Q1

REPORT INFORMATION
  Report Type: 
  Country: None (occurrence: None)
  Receive Date: 20050224
  Receipt Date: 20040318
  Transmission Date: 20050727
  Serious: No
  Sender: FDA-Public Use
  Company Number: US-BRISTOL-MYERS SQUIBB COMPANY-12538211

PATIENT
  Age: 76 Year
  Sex: Female
  Weight: 75 kg

DRUGS (5)
  1. EXCEDRIN (MIGRAINE) [Suspect]
     Indication: HEADACHE
     Route: 048
  2. EXCEDRIN (MIGRAINE) [Suspect]
     Indication: PAIN
     Route: 048
  3. GLUCOPHAGE [Concomitant]
  4. AMARYL [Concomitant]
  5. PEPCID AC [Concomitant]

REACTIONS (2)
  - DYSPEPSIA [None]
  - INSOMNIA [None]
